FAERS Safety Report 21026930 (Version 1)
Quarter: 2022Q2

REPORT INFORMATION
  Report Type: Report from Study
  Country: US (occurrence: US)
  Receive Date: 20220630
  Receipt Date: 20220630
  Transmission Date: 20220721
  Serious: Yes (Other)
  Sender: FDA-Public Use
  Company Number: US-BAYER-2022A089315

PATIENT
  Age: 45 Year
  Sex: Male

DRUGS (1)
  1. AFRIN [Suspect]
     Active Substance: OXYMETAZOLINE
     Dosage: UNK

REACTIONS (2)
  - Drug dependence [Unknown]
  - Rebound effect [Unknown]
